FAERS Safety Report 11546221 (Version 1)
Quarter: 2015Q3

REPORT INFORMATION
  Report Type: Spontaneous
  Country: FR (occurrence: FR)
  Receive Date: 20150924
  Receipt Date: 20150924
  Transmission Date: 20151125
  Serious: Yes (Other)
  Sender: FDA-Public Use
  Company Number: PHHY2015FR113616

PATIENT
  Age: 55 Year
  Sex: Male

DRUGS (1)
  1. GILENYA [Suspect]
     Active Substance: FINGOLIMOD HYDROCHLORIDE
     Indication: MULTIPLE SCLEROSIS
     Dosage: UNK
     Route: 065
     Dates: start: 2014, end: 2015

REACTIONS (4)
  - Weight decreased [Unknown]
  - Adenocarcinoma pancreas [Unknown]
  - Pancreatitis [Unknown]
  - Pancreatic duct obstruction [Unknown]

NARRATIVE: CASE EVENT DATE: 2015
